FAERS Safety Report 23318580 (Version 1)
Quarter: 2023Q4

REPORT INFORMATION
  Report Type: Spontaneous
  Country: US (occurrence: US)
  Receive Date: 20231220
  Receipt Date: 20231220
  Transmission Date: 20240110
  Serious: No
  Sender: FDA-Public Use
  Company Number: US-MTPC-MTDA2023-0028518

PATIENT
  Sex: Male

DRUGS (4)
  1. RADICAVA [Suspect]
     Active Substance: EDARAVONE
     Indication: Amyotrophic lateral sclerosis
     Dosage: 5 MILLILITER, QD 10 OUT OF 14 DAYS THEN 14 DAYS OFF
     Route: 048
     Dates: start: 202308
  2. RADICAVA [Suspect]
     Active Substance: EDARAVONE
     Indication: Amyotrophic lateral sclerosis
     Dosage: 5 MILLILITER, QD 10 OUT OF 14 DAYS THEN 14 DAYS OFF
     Route: 048
     Dates: start: 202308
  3. RELYVRIO [Concomitant]
     Active Substance: SODIUM PHENYLBUTYRATE\TAURURSODIOL
     Indication: Product used for unknown indication
     Dosage: UNK, BID
     Route: 065
     Dates: start: 202308
  4. RILUZOLE [Concomitant]
     Active Substance: RILUZOLE
     Indication: Product used for unknown indication
     Dosage: UNK
     Route: 065

REACTIONS (5)
  - Speech disorder [Not Recovered/Not Resolved]
  - Dysphonia [Not Recovered/Not Resolved]
  - Dyspnoea [Not Recovered/Not Resolved]
  - Throat irritation [Not Recovered/Not Resolved]
  - Frustration tolerance decreased [Not Recovered/Not Resolved]
